FAERS Safety Report 15766277 (Version 1)
Quarter: 2018Q4

REPORT INFORMATION
  Report Type: Spontaneous
  Country: US (occurrence: US)
  Receive Date: 20181227
  Receipt Date: 20181227
  Transmission Date: 20190205
  Serious: No
  Sender: FDA-Public Use
  Company Number: US-PFIZER INC-2018528779

PATIENT
  Age: 56 Year
  Sex: Female

DRUGS (1)
  1. GENOTROPIN [Suspect]
     Active Substance: SOMATROPIN
     Dosage: 0.3 MG, DAILY

REACTIONS (14)
  - Red blood cell count increased [Unknown]
  - Blood thyroid stimulating hormone increased [Unknown]
  - Blood calcium decreased [Unknown]
  - Low density lipoprotein increased [Unknown]
  - Glycosylated haemoglobin increased [Unknown]
  - Blood glucose increased [Unknown]
  - Blood albumin decreased [Unknown]
  - Mean cell haemoglobin decreased [Unknown]
  - Anion gap increased [Unknown]
  - Blood albumin increased [Unknown]
  - Urine albumin/creatinine ratio increased [Unknown]
  - Globulins increased [Unknown]
  - Albumin globulin ratio decreased [Unknown]
  - Red cell distribution width increased [Unknown]
